FAERS Safety Report 6809587-2 (Version None)
Quarter: 2010Q2

REPORT INFORMATION
  Report Type: 
  Country: None (occurrence: None)
  Receive Date: 20100630
  Receipt Date: 20100628
  Transmission Date: 20101027
  Serious: Yes (Death, Hospitalization)
  Sender: FDA-Public Use
  Company Number: PHHY2009IE60163

PATIENT
  Sex: Female

DRUGS (25)
  1. CLOZARIL [Suspect]
     Indication: SCHIZOPHRENIA
     Dosage: 400 MG, QD
     Route: 048
     Dates: start: 19990513
  2. AMITRIPTYLINE HYDROCHLORIDE [Concomitant]
     Dosage: 50 MG, NOCTE
     Route: 048
  3. AMITRIPTYLINE HYDROCHLORIDE [Concomitant]
     Dosage: 75 MG, NOCTE
     Dates: start: 20091209
  4. DIAZEPAM [Concomitant]
     Dosage: 2MG
     Route: 048
  5. DIAZEPAM [Concomitant]
     Dosage: 5 MG TDS
     Route: 048
     Dates: start: 20100225
  6. HYOSCINE HBR HYT [Concomitant]
     Indication: SALIVARY HYPERSECRETION
     Dosage: PRN
     Route: 048
  7. AQUEOUS CREAM [Concomitant]
     Dosage: PRN
     Route: 061
     Dates: start: 20070927
  8. ACETAMINOPHEN [Concomitant]
     Dosage: 1 G, QD
     Route: 048
     Dates: start: 20070927
  9. HALOPERIDOL [Concomitant]
     Dosage: 2 MG, TID
     Route: 048
     Dates: start: 20100220
  10. ALUPENT EXPECTORANT [Concomitant]
     Dosage: TDS, 10MLS
     Route: 048
     Dates: start: 20091111
  11. OXYCODONE HCL [Concomitant]
     Dosage: UNK
     Route: 048
     Dates: start: 20100223
  12. MAXOLON [Concomitant]
     Dosage: 10MLS TDS
     Route: 030
     Dates: start: 20100223
  13. NEXIUM [Concomitant]
     Dosage: 40MG MANE
     Route: 048
     Dates: start: 20100112
  14. NULYTELY [Concomitant]
     Dosage: 1 DF, BID
     Route: 048
     Dates: start: 20100320
  15. VELOTAB [Concomitant]
     Dosage: 20MG NOCTE
     Route: 048
     Dates: start: 20100220
  16. PREGABALIN [Concomitant]
     Dosage: 100MG NOCTE
     Route: 048
     Dates: start: 20100223
  17. CODALAX [Concomitant]
     Dosage: 2 TABLETS NOCTE
     Dates: start: 20100223
  18. COMBIVENT [Concomitant]
     Dosage: 2.5MCG,QDS
     Dates: start: 20081016
  19. IPRATROPIUM [Concomitant]
     Dosage: 500MCG,QDS
     Dates: start: 20081016
  20. PULMICORT [Concomitant]
     Dosage: 0.5MG, NEBULISER, BD
     Dates: start: 20081016
  21. NASONEX [Concomitant]
     Dosage: 2 SPRAYS DAILY
     Route: 045
     Dates: start: 20081016
  22. FENTANYL [Concomitant]
     Dosage: 50MCG, EVERY 72 HOURS
     Route: 061
     Dates: start: 20100223
  23. FORTISIP [Concomitant]
     Dosage: 1 TABLET QDS
     Route: 048
     Dates: start: 20100225
  24. AUGMENTIN '125' [Concomitant]
     Dosage: 625 MG, BID
     Route: 048
     Dates: start: 20100227
  25. STEMETIL [Concomitant]
     Dosage: 5MG (ONE DOSE ONLY)
     Route: 030
     Dates: start: 20100224

REACTIONS (6)
  - GASTROINTESTINAL CANCER METASTATIC [None]
  - HEPATIC CANCER METASTATIC [None]
  - HEPATIC MASS [None]
  - LIVER DISORDER [None]
  - LIVER FUNCTION TEST ABNORMAL [None]
  - LOWER RESPIRATORY TRACT INFECTION [None]
